FAERS Safety Report 5677667-3 (Version None)
Quarter: 2008Q1

REPORT INFORMATION
  Report Type: 
  Country: None (occurrence: None)
  Receive Date: 20080324
  Receipt Date: 20070731
  Transmission Date: 20080703
  Serious: No
  Sender: FDA-Public Use
  Company Number: US-ABBOTT-07P-163-0376655-00

PATIENT
  Sex: Male
  Weight: 45.4 kg

DRUGS (2)
  1. DEPAKENE [Suspect]
     Indication: CONVULSION
     Route: 048
     Dates: start: 20040101, end: 20060101
  2. DEPAKENE [Suspect]
     Route: 048
     Dates: start: 20070501

REACTIONS (1)
  - ABNORMAL BEHAVIOUR [None]
